FAERS Safety Report 5296168-8 (Version None)
Quarter: 2007Q2

REPORT INFORMATION
  Report Type: 
  Country: None (occurrence: None)
  Receive Date: 20070413
  Receipt Date: 20070404
  Transmission Date: 20071010
  Serious: Yes (Hospitalization)
  Sender: FDA-Public Use
  Company Number: 2007AP01379

PATIENT
  Age: 27353 Day
  Sex: Female
  Weight: 62 kg

DRUGS (9)
  1. CRESTOR [Suspect]
     Indication: HYPERCHOLESTEROLAEMIA
     Route: 048
     Dates: start: 20070217, end: 20070228
  2. MEVALOTIN [Concomitant]
     Dates: end: 20070217
  3. ADALAT [Concomitant]
     Indication: HYPERTENSION
     Dates: start: 20030123
  4. ADETPHOS [Concomitant]
     Indication: MENIERE'S DISEASE
     Route: 048
     Dates: start: 20030612
  5. RYTHMODAN R [Concomitant]
     Indication: ATRIAL FIBRILLATION
     Dates: start: 20030911
  6. PURSENNID [Concomitant]
     Indication: CONSTIPATION
     Dates: start: 20041016
  7. LIVALO [Concomitant]
  8. TENORMIN [Concomitant]
     Indication: HYPERTENSION
     Dates: start: 20031114, end: 20070316
  9. LUPRAC [Concomitant]
     Indication: CARDIAC FAILURE CONGESTIVE
     Dates: start: 20040722, end: 20070316

REACTIONS (1)
  - RHABDOMYOLYSIS [None]
